FAERS Safety Report 10185661 (Version 1)
Quarter: 2014Q2

REPORT INFORMATION
  Report Type: Spontaneous
  Country: PT (occurrence: PT)
  Receive Date: 20140521
  Receipt Date: 20140521
  Transmission Date: 20141212
  Serious: Yes (Other)
  Sender: FDA-Public Use
  Company Number: PT-ACCORD-023723

PATIENT
  Age: 85 Year
  Sex: Male

DRUGS (1)
  1. METHOTREXATE [Suspect]
     Indication: RHEUMATOID ARTHRITIS
     Dosage: 17.5 MG/WEEKLY
     Route: 048

REACTIONS (3)
  - Off label use [Unknown]
  - Epstein-Barr virus test positive [Unknown]
  - Angiocentric lymphoma [Recovering/Resolving]
